FAERS Safety Report 18822383 (Version 1)
Quarter: 2021Q1

REPORT INFORMATION
  Report Type: Spontaneous
  Country: DK (occurrence: DK)
  Receive Date: 20210202
  Receipt Date: 20210202
  Transmission Date: 20210419
  Serious: Yes (Hospitalization)
  Sender: FDA-Public Use
  Company Number: NVSC2021DK021247

PATIENT
  Age: 66 Year
  Sex: Male

DRUGS (26)
  1. RIVAROXABAN [Suspect]
     Active Substance: RIVAROXABAN
     Indication: PERIPHERAL ARTERIAL OCCLUSIVE DISEASE
     Dosage: UNK
     Route: 065
  2. OXYCODONE [Concomitant]
     Active Substance: OXYCODONE
     Indication: PRODUCT USED FOR UNKNOWN INDICATION
     Dosage: 30 MG,QD (10 MG, TID)
     Route: 065
     Dates: start: 20200615
  3. TIZANIDINE. [Concomitant]
     Active Substance: TIZANIDINE
     Indication: PRODUCT USED FOR UNKNOWN INDICATION
     Dosage: 12 MG,QD (4 MG, TID)
     Route: 065
     Dates: start: 20200614
  4. TRADOLAN [Concomitant]
     Active Substance: TRAMADOL
     Dosage: 300MG (150 MG, BID)
     Route: 065
     Dates: start: 20200424, end: 20200521
  5. PANODIL [Concomitant]
     Active Substance: ACETAMINOPHEN
     Indication: PRODUCT USED FOR UNKNOWN INDICATION
     Dosage: 4 G, QD (1 G, QID)
     Route: 065
     Dates: start: 20190527, end: 20200521
  6. PANTOPRAZOLE [Concomitant]
     Active Substance: PANTOPRAZOLE
     Indication: PRODUCT USED FOR UNKNOWN INDICATION
     Dosage: 40 MG, QD
     Route: 065
     Dates: start: 20200522, end: 20200617
  7. SIMVASTATIN. [Concomitant]
     Active Substance: SIMVASTATIN
     Indication: PRODUCT USED FOR UNKNOWN INDICATION
     Dosage: 40 MG,QD (40 MG, QD)
     Route: 065
     Dates: start: 20190708, end: 20200521
  8. ACETYLSALICYLIC ACID [Suspect]
     Active Substance: ASPIRIN
     Indication: CARDIOVASCULAR EVENT PROPHYLAXIS
     Dosage: 75 MG, QD
     Route: 065
     Dates: start: 20191008, end: 20200521
  9. KALEORID [Concomitant]
     Active Substance: POTASSIUM CHLORIDE
     Indication: PRODUCT USED FOR UNKNOWN INDICATION
     Dosage: 1500 MG,QD (750 MG, BID)
     Route: 065
     Dates: start: 20200613, end: 20200617
  10. GABAPENTIN. [Concomitant]
     Active Substance: GABAPENTIN
     Indication: PRODUCT USED FOR UNKNOWN INDICATION
     Dosage: 900 MG,QD (300 MG, TID)
     Route: 065
     Dates: start: 20200420, end: 20200521
  11. TRADOLAN [Concomitant]
     Active Substance: TRAMADOL
     Indication: PRODUCT USED FOR UNKNOWN INDICATION
     Dosage: 300 MG,QD (150 MG, BID)
     Route: 065
     Dates: start: 20200602, end: 20200611
  12. ACETYLSALICYLIC ACID [Suspect]
     Active Substance: ASPIRIN
     Indication: CORONARY ARTERY DISEASE
     Dosage: UNK
     Route: 065
  13. ACETYLSALICYLIC ACID [Suspect]
     Active Substance: ASPIRIN
     Indication: PERIPHERAL ARTERIAL OCCLUSIVE DISEASE
     Dosage: UNK
     Route: 065
  14. RIVAROXABAN [Suspect]
     Active Substance: RIVAROXABAN
     Indication: CARDIOVASCULAR EVENT PROPHYLAXIS
     Dosage: 5 MG, QD (2.5 MG, BID)
     Route: 048
     Dates: start: 20200514, end: 20200520
  15. MAGNESIUM SALTS [Concomitant]
     Indication: PRODUCT USED FOR UNKNOWN INDICATION
     Dosage: 1000 MG, QD  (500 MG, BID)
     Route: 065
     Dates: start: 20200619
  16. XARELTO [Concomitant]
     Active Substance: RIVAROXABAN
     Indication: PRODUCT USED FOR UNKNOWN INDICATION
     Dosage: 30 MG,QD (15 MG, BID)
     Route: 065
     Dates: start: 20200521, end: 20200527
  17. ATORVASTATIN [Concomitant]
     Active Substance: ATORVASTATIN
     Indication: PRODUCT USED FOR UNKNOWN INDICATION
     Dosage: 20 MG,QD (20 MG, QD)
     Route: 065
     Dates: start: 20170223, end: 20190705
  18. FRAGMIN [Concomitant]
     Active Substance: DALTEPARIN SODIUM
     Indication: PRODUCT USED FOR UNKNOWN INDICATION
     Dosage: 5000 IU, QD
     Route: 065
     Dates: start: 20200608, end: 20200610
  19. FRAGMIN [Concomitant]
     Active Substance: DALTEPARIN SODIUM
     Dosage: 5000 IU, QD
     Route: 065
     Dates: start: 20200520, end: 20200521
  20. FLUCONAZOL [Concomitant]
     Active Substance: FLUCONAZOLE
     Indication: PRODUCT USED FOR UNKNOWN INDICATION
     Dosage: 150 MG,QD (150 MG, QD)
     Route: 065
     Dates: start: 20200529, end: 20200609
  21. CIPROFLOXACIN. [Concomitant]
     Active Substance: CIPROFLOXACIN
     Dosage: 1500 MG,QD (750 MG, BID)
     Route: 065
     Dates: start: 20200604
  22. KETOGAN [Concomitant]
     Indication: PRODUCT USED FOR UNKNOWN INDICATION
     Dosage: 20 MG,QD (5 MG, QID)
     Route: 065
     Dates: start: 20200614, end: 20200617
  23. RIVAROXABAN [Suspect]
     Active Substance: RIVAROXABAN
     Indication: CORONARY ARTERY DISEASE
     Dosage: UNK
     Route: 065
  24. XARELTO [Concomitant]
     Active Substance: RIVAROXABAN
     Dosage: 30MG (15 MG, BID)
     Route: 065
     Dates: start: 20200608
  25. MALFIN [Concomitant]
     Active Substance: MORPHINE SULFATE
     Indication: PRODUCT USED FOR UNKNOWN INDICATION
     Dosage: 20 MG,QD (10 MG, BID)
     Route: 065
     Dates: start: 20200520, end: 20200521
  26. OXYCODONE HYDROCHLORIDE. [Concomitant]
     Active Substance: OXYCODONE HYDROCHLORIDE
     Indication: PRODUCT USED FOR UNKNOWN INDICATION
     Dosage: 60 MG,QD (20 MG, TID)
     Route: 065
     Dates: start: 20200611

REACTIONS (5)
  - Postoperative thrombosis [Recovered/Resolved]
  - Peripheral ischaemia [Recovered/Resolved]
  - Peripheral ischaemia [Recovered/Resolved]
  - Device related infection [Recovered/Resolved]
  - Peripheral ischaemia [Recovered/Resolved with Sequelae]

NARRATIVE: CASE EVENT DATE: 20200520
